FAERS Safety Report 21086443 (Version 1)
Quarter: 2022Q3

REPORT INFORMATION
  Report Type: Spontaneous
  Country: US (occurrence: US)
  Receive Date: 20220715
  Receipt Date: 20220715
  Transmission Date: 20221027
  Serious: No
  Sender: FDA-Public Use
  Company Number: US-009507513-2207USA004525

PATIENT
  Sex: Female
  Weight: 92.063 kg

DRUGS (4)
  1. KEYTRUDA [Suspect]
     Active Substance: PEMBROLIZUMAB
     Dosage: UNK
  2. LENVATINIB MESYLATE [Suspect]
     Active Substance: LENVATINIB MESYLATE
     Indication: Endometrial neoplasm
     Dosage: 10 MG, DAILY
     Route: 048
     Dates: start: 20220225
  3. NATEGLINIDE [Concomitant]
     Active Substance: NATEGLINIDE
     Dosage: 60 MILLIGRAM
  4. LANTUS [Concomitant]
     Active Substance: INSULIN GLARGINE

REACTIONS (6)
  - Nail disorder [Unknown]
  - Blood magnesium decreased [Unknown]
  - Gastrointestinal tract irritation [Unknown]
  - Contusion [Unknown]
  - Muscle spasms [Unknown]
  - Alopecia [Unknown]
